FAERS Safety Report 9043684 (Version 1)
Quarter: 2013Q1

REPORT INFORMATION
  Report Type: Report from Study
  Country: US (occurrence: US)
  Receive Date: 20130129
  Receipt Date: 20130129
  Transmission Date: 20140127
  Serious: No
  Sender: FDA-Public Use
  Company Number: US-ABBOTT-12P-163-0910174-00

PATIENT
  Age: 51 Year
  Sex: Female

DRUGS (4)
  1. HUMIRA 40 MG/0.8 ML PEN [Suspect]
     Indication: CROHN^S DISEASE
     Dosage: 2 PENS DAY 1
     Route: 058
     Dates: start: 201202
  2. HUMIRA 40 MG/0.8 ML PEN [Suspect]
     Dosage: 2 PENS DAY 2
     Route: 058
  3. HUMIRA 40 MG/0.8 ML PEN [Suspect]
     Route: 058
  4. HUMIRA 40 MG/0.8 ML PEN [Suspect]
     Route: 058

REACTIONS (1)
  - Abdominal pain upper [Recovered/Resolved]
